FAERS Safety Report 14477894 (Version 1)
Quarter: 2018Q1

REPORT INFORMATION
  Report Type: Spontaneous
  Country: IE (occurrence: IE)
  Receive Date: 20180201
  Receipt Date: 20180201
  Transmission Date: 20180509
  Serious: Yes (Disabling, Other)
  Sender: FDA-Public Use
  Company Number: IE-GLAXOSMITHKLINE-IE2018013527

PATIENT
  Age: 50 Year
  Sex: Female
  Weight: 59.6 kg

DRUGS (3)
  1. ESTRADIOL/DYDROGESTERONE [Concomitant]
     Indication: HORMONE REPLACEMENT THERAPY
     Dosage: 1MG +10MGS
     Route: 065
  2. TERBINAFINE. [Suspect]
     Active Substance: TERBINAFINE
     Indication: DERMATOPHYTOSIS OF NAIL
     Dosage: UNK
     Route: 048
     Dates: start: 20171120, end: 20180102
  3. ACICLOVIR [Concomitant]
     Active Substance: ACYCLOVIR
     Indication: VIRAL RASH
     Dosage: UNK
     Dates: start: 20171229, end: 20180104

REACTIONS (4)
  - Rash papulosquamous [Not Recovered/Not Resolved]
  - Rash erythematous [Not Recovered/Not Resolved]
  - Erythema [Not Recovered/Not Resolved]
  - Cutaneous lupus erythematosus [Not Recovered/Not Resolved]

NARRATIVE: CASE EVENT DATE: 20171229
